FAERS Safety Report 9610965 (Version 3)
Quarter: 2014Q1

REPORT INFORMATION
  Report Type: Report from Study
  Country: US (occurrence: US)
  Receive Date: 20131009
  Receipt Date: 20140109
  Transmission Date: 20141002
  Serious: Yes (Hospitalization, Other)
  Sender: FDA-Public Use
  Company Number: US-MPIJNJ-2013MPI000495

PATIENT
  Age: 56 Year
  Sex: Male

DRUGS (13)
  1. VELCADE [Suspect]
     Indication: MANTLE CELL LYMPHOMA
     Dosage: 2.6 MG, UNK
     Route: 042
     Dates: start: 20130906, end: 20130906
  2. ETOPOSIDE [Suspect]
     Indication: MANTLE CELL LYMPHOMA
     Dosage: 99 MG, UNK
     Route: 042
     Dates: start: 20130906, end: 20130906
  3. VINCRISTINE [Suspect]
     Indication: MANTLE CELL LYMPHOMA
     Dosage: 0.79 MG, UNK
     Route: 042
     Dates: start: 20130906, end: 20130906
  4. DOXORUBICIN [Suspect]
     Indication: MANTLE CELL LYMPHOMA
     Dosage: 19.8 MG, UNK
     Route: 042
     Dates: start: 20130906, end: 20130906
  5. CYCLOPHOSPHAMIDE [Suspect]
     Indication: MANTLE CELL LYMPHOMA
     Dosage: 1490 MG, UNK
     Route: 042
     Dates: start: 20130910, end: 20130910
  6. RITUXIMAB [Suspect]
     Indication: MANTLE CELL LYMPHOMA
     Dosage: 743 MG, UNK
     Route: 042
     Dates: start: 20130906, end: 20130906
  7. PREDNISONE [Suspect]
     Indication: MANTLE CELL LYMPHOMA
     Dosage: 120 MG, UNK
     Route: 048
     Dates: start: 20130906
  8. NAPROSYN                           /00256201/ [Concomitant]
  9. TORADOL [Concomitant]
     Indication: ABDOMINAL PAIN
     Dosage: 60 MG, UNK
     Route: 030
  10. ASA [Concomitant]
     Dosage: 975 MG, UNK
     Route: 048
  11. IVIGLOB-EX [Concomitant]
     Dosage: UNK
     Dates: end: 20130925
  12. VANCOMYCINE [Concomitant]
     Dosage: UNK
     Dates: end: 20130924
  13. MEROPENEM [Concomitant]
     Dosage: UNK
     Dates: end: 20130924

REACTIONS (2)
  - Splenic infarction [Recovered/Resolved]
  - Splenic haemorrhage [Recovered/Resolved]
